FAERS Safety Report 8479217-5 (Version None)
Quarter: 2012Q2

REPORT INFORMATION
  Report Type: 
  Country: None (occurrence: None)
  Receive Date: 20120629
  Receipt Date: 20120626
  Transmission Date: 20120825
  Serious: Yes (Hospitalization)
  Sender: FDA-Public Use
  Company Number: IT-BAYER-2012-063192

PATIENT
  Age: 49 Year
  Sex: Male

DRUGS (6)
  1. ASPIRIN [Suspect]
     Indication: AORTIC ANEURYSM
     Dosage: 100 MG, QD
     Route: 048
     Dates: start: 20101117, end: 20120622
  2. ATENOLOL [Concomitant]
     Dosage: DAILY DOSE 25 MG
     Route: 048
  3. LEXOTAN [Concomitant]
     Dosage: DAILY DOSE 1.5 MG
     Route: 048
  4. MICROSER [Concomitant]
     Dosage: DAILY DOSE 16 MG
     Route: 048
  5. LIORESAL [Concomitant]
     Dosage: DAILY DOSE 100 MG
     Route: 048
  6. CLONAZEPAM [Concomitant]
     Dosage: DAILY DOSE 4 DF
     Route: 048

REACTIONS (1)
  - CEREBRAL HAEMATOMA [None]
